FAERS Safety Report 19115838 (Version 1)
Quarter: 2021Q2

REPORT INFORMATION
  Report Type: Spontaneous
  Country: US (occurrence: US)
  Receive Date: 20210409
  Receipt Date: 20210409
  Transmission Date: 20210717
  Serious: Yes (Other)
  Sender: FDA-Public Use
  Company Number: US-TEVA-2021-US-1898186

PATIENT
  Age: 62 Year
  Sex: Female

DRUGS (4)
  1. TRASTUZUMAB. [Concomitant]
     Active Substance: TRASTUZUMAB
     Indication: INVASIVE DUCTAL BREAST CARCINOMA
     Dosage: TWELVE CYCLES
     Route: 065
     Dates: start: 201207, end: 201210
  2. VORINOSTAT [Concomitant]
     Active Substance: VORINOSTAT
     Indication: INVASIVE DUCTAL BREAST CARCINOMA
     Dosage: TWELVE CYCLES
     Route: 065
     Dates: start: 201207, end: 201210
  3. PACLITAXEL. [Suspect]
     Active Substance: PACLITAXEL
     Indication: INVASIVE DUCTAL BREAST CARCINOMA
     Dosage: TWELVE CYCLES
     Route: 065
     Dates: start: 201207, end: 201210
  4. TRASTUZUMAB. [Concomitant]
     Active Substance: TRASTUZUMAB
     Dosage: MAINTENANCE THERAPY
     Route: 065

REACTIONS (1)
  - Vocal cord dysfunction [Recovered/Resolved]

NARRATIVE: CASE EVENT DATE: 201304
